FAERS Safety Report 5272949-1 (Version None)
Quarter: 2007Q1

REPORT INFORMATION
  Report Type: 
  Country: None (occurrence: None)
  Receive Date: 20070322
  Receipt Date: 20070319
  Transmission Date: 20070707
  Serious: Yes (Death)
  Sender: FDA-Public Use
  Company Number: 2007PK00660

PATIENT

DRUGS (1)
  1. CASODEX [Suspect]
     Route: 048

REACTIONS (1)
  - HEPATIC FAILURE [None]
